FAERS Safety Report 25156386 (Version 1)
Quarter: 2025Q2

REPORT INFORMATION
  Report Type: Spontaneous
  Country: AU (occurrence: AU)
  Receive Date: 20250403
  Receipt Date: 20250403
  Transmission Date: 20250717
  Serious: Yes (Hospitalization)
  Sender: Kenvue
  Company Number: None

PATIENT

DRUGS (11)
  1. ACETAMINOPHEN [Suspect]
     Active Substance: ACETAMINOPHEN
     Indication: Prophylaxis
     Dosage: 1000 MILLIGRAM, ONCE IN A WEEK
     Route: 048
     Dates: start: 20230627
  2. DARATUMUMAB [Suspect]
     Active Substance: DARATUMUMAB
     Indication: Plasma cell myeloma
     Dosage: 1800 MILLIGRAM, ONCE IN A WEEK
     Route: 058
     Dates: start: 20230714, end: 20230908
  3. DEXAMETHASONE [Suspect]
     Active Substance: DEXAMETHASONE
     Indication: Plasma cell myeloma
     Dosage: 20 MILLIGRAM, ONCE IN A WEEK
     Route: 048
     Dates: start: 20230627
  4. DEXAMETHASONE [Suspect]
     Active Substance: DEXAMETHASONE
     Indication: Prophylaxis
  5. ELRANATAMAB [Suspect]
     Active Substance: ELRANATAMAB
     Indication: Plasma cell myeloma
     Dosage: 76 MILLIGRAM, ONCE IN A WEEK
     Route: 058
     Dates: start: 20230627, end: 20230908
  6. LENALIDOMIDE [Suspect]
     Active Substance: LENALIDOMIDE
     Indication: Plasma cell myeloma
     Dosage: 10 MILLIGRAM, ONCE A DAY
     Route: 048
     Dates: start: 20230714, end: 20230823
  7. LEXAPRO [Concomitant]
     Active Substance: ESCITALOPRAM OXALATE
     Indication: Anxiety
     Route: 048
     Dates: start: 20230712
  8. THYROXINE [Concomitant]
     Active Substance: LEVOTHYROXINE
     Indication: Thyroid therapy
     Route: 048
     Dates: start: 2016
  9. DIAZEPAM [Concomitant]
     Active Substance: DIAZEPAM
     Indication: Anxiety
     Route: 048
     Dates: start: 20230712
  10. LORATADINE [Concomitant]
     Active Substance: LORATADINE
     Indication: Prophylaxis
     Dosage: 10 MILLIGRAM, ONCE IN A WEEK
     Route: 048
     Dates: start: 20230627, end: 20230908
  11. ONDANSETRON [Concomitant]
     Active Substance: ONDANSETRON
     Indication: Nausea
     Dosage: 8 MILLIGRAM, ONCE IN A WEEK
     Route: 048
     Dates: start: 20230627

REACTIONS (1)
  - Nausea [Recovered/Resolved]

NARRATIVE: CASE EVENT DATE: 20230911
